FAERS Safety Report 8910909 (Version 1)
Quarter: 2012Q4

REPORT INFORMATION
  Report Type: 
  Country: IE (occurrence: IE)
  Receive Date: 20121115
  Receipt Date: 20121115
  Transmission Date: 20130627
  Serious: Yes (Other)
  Sender: FDA-Public Use
  Company Number: IE-ELI_LILLY_AND_COMPANY-IE201211002721

PATIENT
  Age: 73 None
  Sex: Female

DRUGS (6)
  1. FORSTEO [Suspect]
     Indication: OSTEOPOROSIS
     Dosage: 20 ug, unknown
     Route: 058
     Dates: start: 20110906, end: 201210
  2. FORSTEO [Suspect]
     Dosage: 20 ug, unknown
     Route: 058
     Dates: start: 20121024
  3. ASPIRIN [Concomitant]
     Dosage: UNK, unknown
  4. LYRICA [Concomitant]
     Dosage: UNK, unknown
  5. LOSEC [Concomitant]
     Dosage: UNK, unknown
  6. PREDNISOLONE [Concomitant]
     Dosage: UNK, unknown

REACTIONS (3)
  - Hip arthroplasty [Recovered/Resolved]
  - Injection site haemorrhage [Unknown]
  - Intentional drug misuse [Unknown]
